FAERS Safety Report 6160684-7 (Version None)
Quarter: 2009Q2

REPORT INFORMATION
  Report Type: 
  Country: None (occurrence: None)
  Receive Date: 20090420
  Receipt Date: 20090408
  Transmission Date: 20091009
  Serious: Yes (Hospitalization)
  Sender: FDA-Public Use
  Company Number: JP-PFIZER INC-2008089220

PATIENT

DRUGS (1)
  1. DIFLUCAN [Suspect]
     Indication: ANTIFUNGAL PROPHYLAXIS
     Route: 048
     Dates: start: 20080906

REACTIONS (1)
  - ARRHYTHMIA [None]
